FAERS Safety Report 9247988 (Version 5)
Quarter: 2014Q2

REPORT INFORMATION
  Report Type: Spontaneous
  Country: US (occurrence: US)
  Receive Date: 20130423
  Receipt Date: 20140408
  Transmission Date: 20141212
  Serious: Yes (Hospitalization, Other)
  Sender: FDA-Public Use
  Company Number: US-MERCK-1304USA009228

PATIENT
  Sex: Female
  Weight: 65.79 kg

DRUGS (3)
  1. FOSAMAX [Suspect]
     Indication: OSTEOPOROSIS
     Dosage: 10 MG, UNK
     Route: 048
     Dates: start: 199701, end: 200110
  2. FOSAMAX [Suspect]
     Dosage: 70 MG, UNK
     Route: 048
     Dates: start: 200110, end: 200711
  3. FOSAMAX PLUS D [Suspect]
     Indication: OSTEOPOROSIS
     Dosage: 70 MG, UNK
     Route: 048
     Dates: start: 200711, end: 201107

REACTIONS (25)
  - Femur fracture [Recovered/Resolved]
  - Intramedullary rod insertion [Unknown]
  - Femur fracture [Unknown]
  - Intramedullary rod insertion [Unknown]
  - Mastectomy [Unknown]
  - Thyroidectomy [Unknown]
  - Wrist fracture [Unknown]
  - Wrist fracture [Unknown]
  - Calcium deficiency [Unknown]
  - Vitamin D deficiency [Unknown]
  - Blood cholesterol increased [Unknown]
  - Rheumatoid arthritis [Unknown]
  - Hypertension [Unknown]
  - Spinal osteoarthritis [Unknown]
  - Fall [Unknown]
  - Fibula fracture [Recovering/Resolving]
  - Weight increased [Unknown]
  - Wrist surgery [Unknown]
  - Cardiac murmur [Unknown]
  - Osteoarthritis [Unknown]
  - Hypothyroidism [Unknown]
  - Device failure [Unknown]
  - Cataract operation [Unknown]
  - Cataract operation [Unknown]
  - Hormone replacement therapy [Unknown]
